FAERS Safety Report 13660417 (Version 1)
Quarter: 2017Q2

REPORT INFORMATION
  Report Type: Spontaneous
  Country: GB (occurrence: GB)
  Receive Date: 20170616
  Receipt Date: 20170616
  Transmission Date: 20170830
  Serious: Yes (Life-Threatening, Other)
  Sender: FDA-Public Use
  Company Number: GB-AMGEN-GBRSP2017090744

PATIENT
  Age: 69 Year
  Sex: Male

DRUGS (5)
  1. ENBREL [Suspect]
     Active Substance: ETANERCEPT
     Indication: RHEUMATOID ARTHRITIS
     Dosage: 50 MG, WEEKLY
     Route: 058
     Dates: start: 20070201, end: 20170110
  2. FOLIC ACID. [Concomitant]
     Active Substance: FOLIC ACID
  3. METHOTREXATE. [Concomitant]
     Active Substance: METHOTREXATE
  4. PARACETAMOL [Concomitant]
     Active Substance: ACETAMINOPHEN
  5. DIHYDROCODEINE TARTRATE [Concomitant]
     Active Substance: DIHYDROCODEINE BITARTRATE

REACTIONS (1)
  - Rectal cancer metastatic [Not Recovered/Not Resolved]
